FAERS Safety Report 18288320 (Version 1)
Quarter: 2020Q3

REPORT INFORMATION
  Report Type: Spontaneous
  Country: US (occurrence: US)
  Receive Date: 20200920
  Receipt Date: 20200920
  Transmission Date: 20201103
  Serious: Yes (Life-Threatening, Hospitalization)
  Sender: FDA-Public Use
  Company Number: None

PATIENT
  Age: 84 Year
  Sex: Male

DRUGS (1)
  1. ABIRATERONE TAB 250MG [Suspect]
     Active Substance: ABIRATERONE
     Route: 048
     Dates: start: 201909

REACTIONS (4)
  - Therapy interrupted [None]
  - Prostate cancer [None]
  - Pathological fracture [None]
  - Cervical vertebral fracture [None]

NARRATIVE: CASE EVENT DATE: 20200920
